APPROVED DRUG PRODUCT: CETIRIZINE HYDROCHLORIDE
Active Ingredient: CETIRIZINE HYDROCHLORIDE
Strength: 10MG
Dosage Form/Route: TABLET;ORAL
Application: A218895 | Product #001
Applicant: REGCON HOLDINGS LLC
Approved: Oct 3, 2024 | RLD: No | RS: No | Type: OTC